FAERS Safety Report 19056964 (Version 2)
Quarter: 2021Q2

REPORT INFORMATION
  Report Type: Other
  Country: US (occurrence: US)
  Receive Date: 20210325
  Receipt Date: 20210618
  Transmission Date: 20210717
  Serious: Yes (Death, Other)
  Sender: FDA-Public Use
  Company Number: US-ACORDA-ACO_168309_2021

PATIENT
  Sex: Male

DRUGS (1)
  1. INBRIJA [Suspect]
     Active Substance: LEVODOPA
     Indication: PARKINSON^S DISEASE
     Dosage: TWO 42 MILLIGRAM CAPS THREE TIMES DAILY AS NEEDED
     Dates: start: 20191114

REACTIONS (2)
  - Fall [Fatal]
  - Head injury [Fatal]
